FAERS Safety Report 12226339 (Version 2)
Quarter: 2016Q2

REPORT INFORMATION
  Report Type: Spontaneous
  Country: ES (occurrence: ES)
  Receive Date: 20160331
  Receipt Date: 20160408
  Transmission Date: 20160815
  Serious: Yes (Death, Other)
  Sender: FDA-Public Use
  Company Number: PHHY2016ES042355

PATIENT
  Age: 65 Year
  Sex: Female

DRUGS (3)
  1. AFINITOR [Suspect]
     Active Substance: EVEROLIMUS
     Indication: BREAST CANCER METASTATIC
  2. EXEMESTANE. [Concomitant]
     Active Substance: EXEMESTANE
     Indication: PRODUCT USED FOR UNKNOWN INDICATION
     Dosage: 25 MG, UNK
     Route: 065
     Dates: start: 20150519
  3. AFINITOR [Suspect]
     Active Substance: EVEROLIMUS
     Indication: BREAST CANCER
     Dosage: 10 MG, UNK
     Route: 065
     Dates: start: 20151119

REACTIONS (9)
  - Mucosal inflammation [Recovered/Resolved]
  - Pneumonia [Unknown]
  - Epistaxis [Recovered/Resolved]
  - Cardiogenic shock [Fatal]
  - Pleural effusion [Not Recovered/Not Resolved]
  - Lung infiltration [Fatal]
  - Respiratory failure [Fatal]
  - Pulmonary toxicity [Unknown]
  - Pneumonitis [Unknown]

NARRATIVE: CASE EVENT DATE: 20160114
